FAERS Safety Report 4853188-2 (Version None)
Quarter: 2005Q4

REPORT INFORMATION
  Report Type: 
  Country: None (occurrence: None)
  Receive Date: 20051214
  Receipt Date: 20051208
  Transmission Date: 20060501
  Serious: Yes (Disabling)
  Sender: FDA-Public Use
  Company Number: NL-ROCHE-427806

PATIENT
  Age: 75 Year
  Sex: Male

DRUGS (8)
  1. XELODA [Suspect]
     Route: 048
     Dates: start: 20050729, end: 20050919
  2. ELOXATIN [Suspect]
     Route: 042
     Dates: start: 20050729, end: 20050819
  3. LATANOPROST [Concomitant]
     Indication: GLAUCOMA
     Dosage: DOSE REPORTED AS 1 GTT DAILY
     Route: 047
     Dates: start: 20040615
  4. BETAXOLOL [Concomitant]
     Dosage: DOSE REPORTED AS 2 GTT DAILY
     Route: 047
     Dates: start: 20040615
  5. ASPIRIN [Concomitant]
     Route: 048
     Dates: start: 20040615
  6. GRANISETRON [Concomitant]
     Indication: NAUSEA
     Route: 048
     Dates: start: 20050729, end: 20050819
  7. METOCLOPRAMIDE [Concomitant]
     Indication: NAUSEA
     Route: 048
     Dates: start: 20050729, end: 20050819
  8. LOPERAMIDE [Concomitant]
     Indication: DIARRHOEA
     Route: 048
     Dates: start: 20050729

REACTIONS (7)
  - AGEUSIA [None]
  - EYE DISORDER [None]
  - GLAUCOMA [None]
  - MUCOSAL DRYNESS [None]
  - MUCOUS MEMBRANE DISORDER [None]
  - NEUROPATHY [None]
  - PERFORMANCE STATUS DECREASED [None]
